FAERS Safety Report 10076697 (Version 1)
Quarter: 2014Q2

REPORT INFORMATION
  Report Type: Spontaneous
  Country: SK (occurrence: SK)
  Receive Date: 20140414
  Receipt Date: 20140414
  Transmission Date: 20141212
  Serious: Yes (Hospitalization)
  Sender: FDA-Public Use
  Company Number: SK-GLAXOSMITHKLINE-B0985465A

PATIENT
  Sex: Female

DRUGS (3)
  1. BENLYSTA [Suspect]
     Indication: SYSTEMIC LUPUS ERYTHEMATOSUS
     Dosage: 10MGK PER DAY
     Route: 065
     Dates: end: 20140318
  2. AZATHIOPRINE [Concomitant]
  3. HYDROXYCHLOROQUINE [Concomitant]

REACTIONS (2)
  - Systemic lupus erythematosus [Unknown]
  - Mucous membrane disorder [Unknown]
